FAERS Safety Report 6339560-2 (Version None)
Quarter: 2009Q3

REPORT INFORMATION
  Report Type: 
  Country: None (occurrence: None)
  Receive Date: 20090903
  Receipt Date: 20090831
  Transmission Date: 20100115
  Serious: Yes (Death, Hospitalization)
  Sender: FDA-Public Use
  Company Number: IT-AMGEN-UK250420

PATIENT
  Sex: Male

DRUGS (15)
  1. PANITUMUMAB [Suspect]
     Indication: COLORECTAL CANCER
     Route: 042
     Dates: start: 20070725, end: 20071005
  2. FLUOROURACIL [Concomitant]
     Route: 042
     Dates: start: 20070725
  3. FOLINIC ACID [Concomitant]
     Route: 042
     Dates: start: 20070725
  4. IRINOTECAN HCL [Concomitant]
     Route: 042
     Dates: start: 20070725
  5. FUROSEMIDE [Concomitant]
     Route: 065
     Dates: start: 20071103
  6. DURAGESIC-100 [Concomitant]
     Route: 065
  7. RAMIPRIL [Concomitant]
     Route: 065
  8. AMIODARONE [Concomitant]
     Route: 065
  9. NADROPARIN CALCIUM [Concomitant]
     Route: 065
  10. CARVEDILOL [Concomitant]
     Route: 065
  11. OMEPRAZOLE [Concomitant]
     Route: 065
  12. ROCEPHIN [Concomitant]
     Route: 065
     Dates: start: 20071027, end: 20071101
  13. LEVOFLOXACIN [Concomitant]
     Route: 065
     Dates: start: 20071027, end: 20071101
  14. CIPROFLOXACIN HCL [Concomitant]
     Route: 065
     Dates: start: 20071105, end: 20071110
  15. CANRENOL [Concomitant]
     Route: 065
     Dates: start: 20071028, end: 20071101

REACTIONS (6)
  - BACK PAIN [None]
  - CENTRAL LINE INFECTION [None]
  - DEATH [None]
  - INTERSTITIAL LUNG DISEASE [None]
  - METASTASES TO BONE [None]
  - PNEUMONITIS [None]
